FAERS Safety Report 8456693-5 (Version None)
Quarter: 2012Q2

REPORT INFORMATION
  Report Type: 
  Country: None (occurrence: None)
  Receive Date: 20120621
  Receipt Date: 20120612
  Transmission Date: 20120825
  Serious: No
  Sender: FDA-Public Use
  Company Number: US-B.I. PHARMACEUTICALS,INC./RIDGEFIELD-2012-BP-13605BP

PATIENT
  Sex: Male

DRUGS (8)
  1. DIGOXIN [Concomitant]
     Dosage: 0.125 MCG
     Route: 048
     Dates: start: 19950101
  2. ZOCOR [Concomitant]
     Indication: HYPERLIPIDAEMIA
     Dosage: 40 MG
     Route: 048
     Dates: start: 20020101
  3. DIGOXIN [Concomitant]
     Dosage: 0.25 MCG
     Route: 048
     Dates: start: 19950101
  4. TRADJENTA [Suspect]
     Indication: TYPE 2 DIABETES MELLITUS
     Dosage: 5 MG
     Route: 048
     Dates: start: 20120510
  5. SINGULAIR [Concomitant]
     Indication: HYPERSENSITIVITY
     Dosage: 40 MG
     Route: 048
  6. ASPIRIN [Concomitant]
     Indication: ATRIAL FIBRILLATION
     Dosage: 325 MG
     Route: 048
     Dates: start: 20070101
  7. VERAPAMIL [Concomitant]
     Indication: ARRHYTHMIA
     Dosage: 320 MG
     Route: 048
     Dates: start: 19950101
  8. SINGULAIR [Concomitant]
     Indication: ASTHMA

REACTIONS (1)
  - CONSTIPATION [None]
